FAERS Safety Report 4520058-9 (Version None)
Quarter: 2004Q4

REPORT INFORMATION
  Report Type: 
  Country: None (occurrence: None)
  Receive Date: 20041207
  Receipt Date: 20041201
  Transmission Date: 20050328
  Serious: Yes (Other)
  Sender: FDA-Public Use
  Company Number: PHEH2004US12854

PATIENT
  Age: 28 Year
  Sex: Female

DRUGS (1)
  1. LAMISIL [Suspect]
     Indication: NAIL TINEA
     Dosage: 250 MG, ONCE/SINGLE
     Route: 048
     Dates: start: 20041129, end: 20041129

REACTIONS (1)
  - HEADACHE [None]
